FAERS Safety Report 5013409-2 (Version None)
Quarter: 2006Q2

REPORT INFORMATION
  Report Type: 
  Country: None (occurrence: None)
  Receive Date: 20060524
  Receipt Date: 20060314
  Transmission Date: 20061013
  Serious: Yes (Death)
  Sender: FDA-Public Use
  Company Number: T200600299

PATIENT
  Age: 48 Year
  Sex: 0

DRUGS (3)
  1. HYDROCODONE BITARTRATE/APAP (HYDROCODONE BITARTRATE,ACETAMINOPHEN) TAB [Suspect]
     Dosage: ORAL
     Route: 048
  2. TRICYCLIC ANTIDEPRESSANTS () [Suspect]
  3. ASPIRIN [Suspect]

REACTIONS (1)
  - COMPLETED SUICIDE [None]
